FAERS Safety Report 9459195 (Version 2)
Quarter: 2013Q4

REPORT INFORMATION
  Report Type: Report from Study
  Country: JP (occurrence: JP)
  Receive Date: 20130814
  Receipt Date: 20131129
  Transmission Date: 20140711
  Serious: Yes (Death, Other)
  Sender: FDA-Public Use
  Company Number: JP-ROCHE-1260779

PATIENT
  Age: 81 Year
  Sex: Female

DRUGS (5)
  1. ALTEPLASE [Suspect]
     Indication: THROMBOTIC CEREBRAL INFARCTION
     Dosage: DAILY DOSE: 12 MIU
     Route: 042
     Dates: start: 20130124, end: 20130124
  2. EDARAVONE [Suspect]
     Indication: THROMBOTIC CEREBRAL INFARCTION
     Dosage: BAG, 30 MG X 2
     Route: 041
     Dates: start: 20130124, end: 20130129
  3. WARFARIN POTASSIUM [Suspect]
     Indication: THROMBOTIC CEREBRAL INFARCTION
     Route: 048
     Dates: start: 20130126, end: 20130127
  4. GLYCEOL [Concomitant]
     Route: 041
     Dates: start: 20130124, end: 20130126
  5. TAMIFLU [Concomitant]
     Route: 048
     Dates: start: 20130125, end: 20130127

REACTIONS (2)
  - Cardiac failure acute [Fatal]
  - Cardio-respiratory arrest [Unknown]
